FAERS Safety Report 8936904 (Version 2)
Quarter: 2013Q1

REPORT INFORMATION
  Report Type: Spontaneous
  Country: NO (occurrence: NO)
  Receive Date: 20121130
  Receipt Date: 20130109
  Transmission Date: 20140127
  Serious: Yes (Other)
  Sender: FDA-Public Use
  Company Number: PHHY2012NO109033

PATIENT
  Sex: Male

DRUGS (3)
  1. GILENYA [Suspect]
     Route: 048
  2. REBIF [Suspect]
     Indication: MULTIPLE SCLEROSIS
     Route: 058
  3. REBIF [Suspect]
     Route: 058

REACTIONS (2)
  - Bladder cancer [Unknown]
  - Unevaluable event [Unknown]
